FAERS Safety Report 11587217 (Version 2)
Quarter: 2016Q2

REPORT INFORMATION
  Report Type: Spontaneous
  Country: US (occurrence: US)
  Receive Date: 20151001
  Receipt Date: 20160613
  Transmission Date: 20160815
  Serious: No
  Sender: FDA-Public Use
  Company Number: US-PFIZER INC-2015325384

PATIENT
  Sex: Male

DRUGS (3)
  1. GEODON [Suspect]
     Active Substance: ZIPRASIDONE HYDROCHLORIDE\ZIPRASIDONE MESYLATE
     Indication: MOOD ALTERED
     Dosage: 4 MG, 2X/DAY
     Dates: start: 2008, end: 2014
  2. RISPERIDONE. [Suspect]
     Active Substance: RISPERIDONE
     Dosage: 30MG/0.3MG/0.5MG, WEEKLY
     Dates: start: 2007
  3. VALPROIC ACID. [Suspect]
     Active Substance: VALPROIC ACID
     Dosage: UNK
     Dates: start: 2007

REACTIONS (2)
  - Erectile dysfunction [Not Recovered/Not Resolved]
  - Dysphonia [Not Recovered/Not Resolved]
